FAERS Safety Report 8145560-2 (Version None)
Quarter: 2012Q1

REPORT INFORMATION
  Report Type: 
  Country: None (occurrence: None)
  Receive Date: 20120217
  Receipt Date: 20110418
  Transmission Date: 20120608
  Serious: No
  Sender: FDA-Public Use
  Company Number: US-ABBOTT-11P-163-0719818-00

PATIENT
  Sex: Male
  Weight: 121.67 kg

DRUGS (2)
  1. SIMCOR [Suspect]
     Indication: BLOOD CHOLESTEROL INCREASED
     Dosage: 500/20MG
     Dates: start: 20110416, end: 20110418
  2. PHENTERMINE [Concomitant]
     Indication: WEIGHT CONTROL
     Dosage: IN THE MORNING

REACTIONS (3)
  - SKIN BURNING SENSATION [None]
  - DYSPNOEA [None]
  - EAR DISCOMFORT [None]
